FAERS Safety Report 4316619-2 (Version None)
Quarter: 2004Q1

REPORT INFORMATION
  Report Type: 
  Country: None (occurrence: None)
  Receive Date: 20040311
  Receipt Date: 20040228
  Transmission Date: 20041129
  Serious: Yes (Hospitalization)
  Sender: FDA-Public Use
  Company Number: 2004201253JP

PATIENT
  Age: 74 Year
  Sex: Male
  Weight: 30 kg

DRUGS (4)
  1. HALCION [Suspect]
     Indication: DEPRESSION
     Dosage: 0.125 MG/DAY, ORAL
     Route: 048
  2. AMITRIPTYLINE HCL [Concomitant]
  3. OXAZOLAM (OXAZOLAM) [Concomitant]
  4. NITRAZEPAM [Concomitant]

REACTIONS (8)
  - ANOREXIA [None]
  - DECREASED ACTIVITY [None]
  - DEHYDRATION [None]
  - DEPRESSED LEVEL OF CONSCIOUSNESS [None]
  - DEPRESSION [None]
  - MALNUTRITION [None]
  - MUSCLE ATROPHY [None]
  - MUSCULAR WEAKNESS [None]
